FAERS Safety Report 5621120-X (Version None)
Quarter: 2008Q1

REPORT INFORMATION
  Report Type: 
  Country: None (occurrence: None)
  Receive Date: 20080114
  Receipt Date: 20070118
  Transmission Date: 20080703
  Serious: Yes (Hospitalization)
  Sender: FDA-Public Use
  Company Number: A03200700481

PATIENT
  Age: 72 Year
  Sex: Female
  Weight: 30.8582 kg

DRUGS (3)
  1. PLAVIX [Suspect]
     Indication: CARDIAC OPERATION
     Dosage: 75 MG QD - ORAL
     Route: 048
     Dates: start: 20010101, end: 20020101
  2. HYPERTENSION MEDICATION [Concomitant]
  3. CHOLESTEROL [Concomitant]

REACTIONS (2)
  - CEREBROVASCULAR ACCIDENT [None]
  - PLEURAL EFFUSION [None]
